FAERS Safety Report 9173879 (Version 1)
Quarter: 2013Q1

REPORT INFORMATION
  Report Type: Spontaneous
  Country: US (occurrence: None)
  Receive Date: 20130314
  Receipt Date: 20130314
  Transmission Date: 20140127
  Serious: Yes (Other)
  Sender: FDA-Public Use
  Company Number: JPI-P-030234

PATIENT
  Age: 60 Year
  Sex: Female
  Weight: 123.83 kg

DRUGS (2)
  1. XYREM (500 MILLIGRAM/MILLILITERS, SOLUTION) (SODIUM OXYBATE) [Suspect]
     Indication: NARCOLEPSY
     Dosage: (2.25 GM,2 IN 1 D)
     Route: 048
     Dates: start: 20130130
  2. XYREM (500 MILLIGRAM/MILLILITERS, SOLUTION) (SODIUM OXYBATE) [Suspect]
     Indication: SOMNOLENCE
     Dosage: (2.25 GM,2 IN 1 D)
     Route: 048
     Dates: start: 20130130

REACTIONS (3)
  - Depressed level of consciousness [None]
  - Unresponsive to stimuli [None]
  - Hypopnoea [None]
